FAERS Safety Report 11735652 (Version 2)
Quarter: 2015Q4

REPORT INFORMATION
  Report Type: Spontaneous
  Country: US (occurrence: None)
  Receive Date: 20151112
  Receipt Date: 20151112
  Transmission Date: 20160304
  Serious: No
  Sender: FDA-Public Use
  Company Number: None

PATIENT
  Age: 66 Year
  Sex: Female
  Weight: 61.24 kg

DRUGS (8)
  1. COQ10 [Concomitant]
     Active Substance: UBIDECARENONE
  2. ANASTRAZOLE [Suspect]
     Active Substance: ANASTROZOLE
     Indication: BREAST CANCER
     Dosage: 1 PILL
     Dates: start: 20141215, end: 20151030
  3. CALCIUM +VITAMIN D [Concomitant]
  4. FISH OIL [Concomitant]
     Active Substance: FISH OIL
  5. SIMVASTATIN. [Concomitant]
     Active Substance: SIMVASTATIN
  6. AMLODOPINE [Concomitant]
  7. ANASTRAZOLE [Concomitant]
     Active Substance: ANASTROZOLE
  8. ANASTRAZOLE [Suspect]
     Active Substance: ANASTROZOLE
     Indication: PROPHYLAXIS
     Dosage: 1 PILL
     Dates: start: 20141215, end: 20151030

REACTIONS (7)
  - Pain in extremity [None]
  - Weight increased [None]
  - Trigger finger [None]
  - Asthenia [None]
  - Arthralgia [None]
  - Insomnia [None]
  - Joint stiffness [None]
